FAERS Safety Report 8015991-X (Version None)
Quarter: 2011Q4

REPORT INFORMATION
  Report Type: 
  Country: None (occurrence: None)
  Receive Date: 20111230
  Receipt Date: 20111230
  Transmission Date: 20120403
  Serious: Yes (Life-Threatening)
  Sender: FDA-Public Use
  Company Number: None

PATIENT
  Age: 50 Year
  Sex: Female
  Weight: 146.96 kg

DRUGS (1)
  1. ZOSYN [Suspect]
     Indication: OSTEOMYELITIS
     Dosage: 3.375 GMS
     Route: 042
     Dates: start: 20110930, end: 20111018

REACTIONS (11)
  - FACE OEDEMA [None]
  - STEVENS-JOHNSON SYNDROME [None]
  - DRUG ERUPTION [None]
  - STASIS DERMATITIS [None]
  - GENITAL ULCERATION [None]
  - DRUG HYPERSENSITIVITY [None]
  - RASH PRURITIC [None]
  - BLISTER [None]
  - DYSPNOEA [None]
  - MOUTH ULCERATION [None]
  - DERMATITIS ALLERGIC [None]
